FAERS Safety Report 11880342 (Version 1)
Quarter: 2015Q4

REPORT INFORMATION
  Report Type: Report from Study
  Country: GB (occurrence: GB)
  Receive Date: 20151230
  Receipt Date: 20151230
  Transmission Date: 20160305
  Serious: Yes (Other)
  Sender: FDA-Public Use
  Company Number: GB-JNJFOC-20151014509

PATIENT
  Age: 29 Year
  Sex: Female

DRUGS (15)
  1. ORAMORPH [Concomitant]
     Active Substance: MORPHINE SULFATE
     Dosage: 2.5 TO 5 MG 3 HOURLY AS REQUIRED.
     Route: 048
  2. BETNOVATE [Concomitant]
     Active Substance: BETAMETHASONE
     Dosage: AT NIGHT WHEN REQUIRED
     Route: 065
  3. DICLOFENAC SODIUM. [Concomitant]
     Active Substance: DICLOFENAC SODIUM
     Route: 065
  4. ETORICOXIB [Concomitant]
     Active Substance: ETORICOXIB
     Route: 065
  5. MORPHINE [Concomitant]
     Active Substance: MORPHINE
     Route: 065
  6. STELARA [Suspect]
     Active Substance: USTEKINUMAB
     Indication: PSORIASIS
     Route: 058
     Dates: start: 20150706
  7. CODEINE [Concomitant]
     Active Substance: CODEINE
     Dosage: 1-4 TABLETS FOUR TO SIX HOURLY WHEN REQUIRED
     Route: 048
  8. BUPRENORPHINE. [Concomitant]
     Active Substance: BUPRENORPHINE
     Dosage: APPLY ONE 10 MICROGRAM/HOUR PATCH EACH WEEK AS DIRECTED
     Route: 065
  9. DOVOBET [Concomitant]
     Active Substance: BETAMETHASONE\CALCIPOTRIENE
     Route: 065
  10. NAPROXEN. [Concomitant]
     Active Substance: NAPROXEN
     Route: 065
  11. DICLOFENAC [Concomitant]
     Active Substance: DICLOFENAC
     Route: 048
  12. ELOCON [Concomitant]
     Active Substance: MOMETASONE FUROATE
     Dosage: APPLY THINLY ONCE DAILY AS DIRECTED BY DERMATOLOGIST
     Route: 065
  13. CILEST [Concomitant]
     Active Substance: ETHINYL ESTRADIOL\NORGESTIMATE
     Dosage: AS DIRECTED
     Route: 065
  14. OMEPRAZOLE. [Concomitant]
     Active Substance: OMEPRAZOLE
     Dosage: PRN 1-2 EVERY DAY
     Route: 065
  15. EPADERM [Concomitant]
     Active Substance: MINERAL OIL\PETROLATUM\WAX, EMULSIFYING
     Dosage: AS DIRECTED
     Route: 065

REACTIONS (4)
  - Therapeutic response decreased [Unknown]
  - Psoriatic arthropathy [Unknown]
  - Arthralgia [Unknown]
  - Pharyngitis [Recovered/Resolved]

NARRATIVE: CASE EVENT DATE: 20150813
